FAERS Safety Report 5136275-3 (Version None)
Quarter: 2006Q4

REPORT INFORMATION
  Report Type: 
  Country: None (occurrence: None)
  Receive Date: 20061027
  Receipt Date: 20061016
  Transmission Date: 20070319
  Serious: Yes (Other)
  Sender: FDA-Public Use
  Company Number: US-ROCHE-467715

PATIENT
  Age: 47 Year
  Sex: Female
  Weight: 57.6 kg

DRUGS (5)
  1. BONIVA [Suspect]
     Indication: OSTEOPENIA
     Route: 048
     Dates: start: 20050615
  2. CELEBREX [Concomitant]
     Indication: ARTHRITIS
     Dosage: ONE TWICE DAY.
     Route: 048
  3. ACYCLOVIR [Concomitant]
     Dosage: ONE PER DAY.
     Route: 048
  4. ALLEGRA [Concomitant]
     Indication: SEASONAL ALLERGY
     Dosage: ONE PER DAY.
     Route: 048
  5. MULTIVITAMIN NOS [Concomitant]
     Dosage: DRUG REPORTED AS MULTIVITAMINS, ONE PER DAY.
     Route: 048

REACTIONS (2)
  - BEHCET'S SYNDROME [None]
  - CONDITION AGGRAVATED [None]
